FAERS Safety Report 25860629 (Version 1)
Quarter: 2025Q3

REPORT INFORMATION
  Report Type: Spontaneous
  Country: US (occurrence: None)
  Receive Date: 20250929
  Receipt Date: 20250929
  Transmission Date: 20251021
  Serious: Yes (Hospitalization, Other)
  Sender: FDA-CTU
  Company Number: None

PATIENT
  Age: 70 Year
  Sex: Female
  Weight: 91.5 kg

DRUGS (1)
  1. HECTOROL [Suspect]
     Active Substance: DOXERCALCIFEROL
     Indication: Hyperparathyroidism secondary
     Route: 040
     Dates: start: 20250917, end: 20250917

REACTIONS (7)
  - Dyspnoea [None]
  - Throat irritation [None]
  - Dialysis related complication [None]
  - Erythema [None]
  - Chest pain [None]
  - Blood pressure increased [None]
  - Drug hypersensitivity [None]

NARRATIVE: CASE EVENT DATE: 20250917
